FAERS Safety Report 14497848 (Version 3)
Quarter: 2025Q4

REPORT INFORMATION
  Report Type: Spontaneous
  Country: EU (occurrence: EU)
  Receive Date: 20180207
  Receipt Date: 20251204
  Transmission Date: 20260117
  Serious: Yes (Other)
  Sender: Haleon PLC
  Company Number: EU-GSKJP-PHBS2004IT01950

PATIENT
  Age: 36 Year
  Sex: Female

DRUGS (12)
  1. DICLOFENAC SODIUM [Suspect]
     Active Substance: DICLOFENAC SODIUM
     Indication: Sciatica
     Dosage: 75 MG, QD, FROM THE 2ND TO THE 3RD MONTH DURING MOTHER PREGNANCY : 8 WEEKS
     Route: 065
  2. DICLOFENAC SODIUM [Suspect]
     Active Substance: DICLOFENAC SODIUM
     Indication: Neuritis
  3. NIMESULIDE [Suspect]
     Active Substance: NIMESULIDE
     Indication: Neuritis
     Dosage: 200 MG, QD.,100-200 MG, DAILY (FROM 3 MONTHS GW TO 1 MONTH
     Route: 065
  4. NIMESULIDE [Suspect]
     Active Substance: NIMESULIDE
     Indication: Sciatica
     Dosage: 100 MG, QD, FROM 4 MONTHS GW TO DELIV
     Route: 065
  5. NIMESULIDE [Suspect]
     Active Substance: NIMESULIDE
     Dosage: 1 DF, QD, FREQUENCY : QD100- 200MG
  6. NIMESULIDE [Suspect]
     Active Substance: NIMESULIDE
     Dosage: 100 MG, QD
  7. ACETAMINOPHEN [Suspect]
     Active Substance: ACETAMINOPHEN
     Indication: Neuritis
     Dosage: 2 G, QD,1-2 G PER DAY (4TH MONTH TO DELIVERY)
     Route: 065
  8. ACETAMINOPHEN [Suspect]
     Active Substance: ACETAMINOPHEN
     Indication: Sciatica
     Dosage: 9 G, QD,8-9 G PER DAY,(2ND TO 3RD MONTH OF GESTATION)
     Route: 065
  9. ACETAMINOPHEN [Suspect]
     Active Substance: ACETAMINOPHEN
     Dosage: MATERNAL DOSE (8-9 G, QD),
  10. ACETAMINOPHEN [Suspect]
     Active Substance: ACETAMINOPHEN
     Dosage: 1-2 G/DAY (4TH MONTH TO DELIVERY)
     Route: 065
  11. ACETAMINOPHEN [Suspect]
     Active Substance: ACETAMINOPHEN
     Dosage: 1-2G MATERNAL DOSE: 1 DF, QD (1UG/LITRE)
  12. ACETAMINOPHEN [Suspect]
     Active Substance: ACETAMINOPHEN
     Dosage: 1 DF, QD, FREQUENCY : QD
     Route: 065

REACTIONS (7)
  - Oligohydramnios [Unknown]
  - Premature delivery [Unknown]
  - Maternal exposure during pregnancy [Recovered/Resolved]
  - Contraindication to medical treatment [Unknown]
  - Overdose [Unknown]
  - Product use issue [Unknown]
  - Amniotic cavity disorder [Unknown]
